FAERS Safety Report 6793136-1 (Version None)
Quarter: 2010Q2

REPORT INFORMATION
  Report Type: 
  Country: None (occurrence: None)
  Receive Date: 20100624
  Receipt Date: 20090630
  Transmission Date: 20101027
  Serious: Yes (Other)
  Sender: FDA-Public Use
  Company Number: US-MYLANLABS-2009S1009717

PATIENT
  Age: 14 Year
  Sex: Male

DRUGS (9)
  1. CLOZAPINE [Suspect]
     Indication: ASPERGER'S DISORDER
     Route: 048
     Dates: start: 20090518, end: 20090608
  2. CLOZAPINE [Suspect]
     Indication: AGITATION
     Route: 048
     Dates: start: 20090518, end: 20090608
  3. CLOZAPINE [Suspect]
     Route: 048
     Dates: start: 20090518, end: 20090608
  4. CLOZAPINE [Suspect]
     Route: 048
     Dates: start: 20090518, end: 20090608
  5. SEROQUEL [Concomitant]
     Route: 048
     Dates: start: 20081209
  6. VYVANSE [Concomitant]
     Route: 048
     Dates: start: 20081209
  7. LITHIUM [Concomitant]
     Route: 048
     Dates: start: 20090427
  8. SERTRALINE HCL [Concomitant]
     Route: 048
  9. TENEX [Concomitant]
     Route: 048

REACTIONS (2)
  - GRANULOCYTOPENIA [None]
  - WHITE BLOOD CELL COUNT DECREASED [None]
